FAERS Safety Report 6102341-9 (Version None)
Quarter: 2009Q1

REPORT INFORMATION
  Report Type: 
  Country: None (occurrence: None)
  Receive Date: 20090304
  Receipt Date: 20090223
  Transmission Date: 20090719
  Serious: Yes (Life-Threatening)
  Sender: FDA-Public Use
  Company Number: TW-BAYER-200914435GPV

PATIENT
  Age: 65 Year
  Sex: Male

DRUGS (1)
  1. ULTRAVIST 370 [Suspect]
     Indication: CONTRAST MEDIA REACTION
     Dosage: TOTAL DAILY DOSE: 105 ML
     Route: 042
     Dates: start: 20090206, end: 20090206

REACTIONS (2)
  - HYPOAESTHESIA [None]
  - LOSS OF CONSCIOUSNESS [None]
